FAERS Safety Report 15370761 (Version 1)
Quarter: 2018Q3

REPORT INFORMATION
  Report Type: Spontaneous
  Country: US (occurrence: US)
  Receive Date: 20180905
  Receipt Date: 20180905
  Transmission Date: 20181010
  Serious: No
  Sender: FDA-Public Use
  Company Number: None

PATIENT
  Age: 55 Year
  Sex: Female
  Weight: 124.2 kg

DRUGS (8)
  1. IRON [Concomitant]
     Active Substance: IRON
  2. POTASSIUM [Concomitant]
     Active Substance: POTASSIUM
  3. VITAMIN B [Concomitant]
     Active Substance: VITAMIN B
  4. MULTIVITAMIN [Concomitant]
     Active Substance: VITAMINS
  5. OLANZAPINE TABLETS, USP [Suspect]
     Active Substance: OLANZAPINE
     Indication: SCHIZOPHRENIA
     Dosage: ?          QUANTITY:1 DF DOSAGE FORM;?
     Route: 048
  6. IBUPROFEN. [Concomitant]
     Active Substance: IBUPROFEN
  7. LORAZEPAM. [Concomitant]
     Active Substance: LORAZEPAM
  8. FISH OIL [Concomitant]
     Active Substance: FISH OIL

REACTIONS (2)
  - Paraesthesia [None]
  - Drug hypersensitivity [None]

NARRATIVE: CASE EVENT DATE: 20180829
